FAERS Safety Report 6139230-X (Version None)
Quarter: 2009Q2

REPORT INFORMATION
  Report Type: 
  Country: None (occurrence: None)
  Receive Date: 20090401
  Receipt Date: 20090323
  Transmission Date: 20091009
  Serious: Yes (Hospitalization)
  Sender: FDA-Public Use
  Company Number: FR-WYE-G03373909

PATIENT
  Sex: Female

DRUGS (4)
  1. EFFEXOR [Suspect]
     Route: 048
  2. CELIPROLOL [Concomitant]
     Route: 048
  3. LESCOL [Concomitant]
     Dosage: UNKNOWN
     Route: 048
     Dates: end: 20090227
  4. KARDEGIC [Suspect]
     Route: 048
     Dates: end: 20090303

REACTIONS (2)
  - CEREBRAL HAEMATOMA [None]
  - FALL [None]
